FAERS Safety Report 19366771 (Version 2)
Quarter: 2021Q2

REPORT INFORMATION
  Report Type: Spontaneous
  Country: US (occurrence: US)
  Receive Date: 20210603
  Receipt Date: 20210616
  Transmission Date: 20210717
  Serious: No
  Sender: FDA-Public Use
  Company Number: US-NXDC-GLE-0014-2021

PATIENT
  Age: 68 Year
  Sex: Male
  Weight: 97.2 kg

DRUGS (6)
  1. ATORVASTATIN [Concomitant]
     Active Substance: ATORVASTATIN
     Dosage: 80MG DAILY
  2. DEXAMETHASONE. [Concomitant]
     Active Substance: DEXAMETHASONE
     Dosage: 4MG Q6H
  3. SYNTHROID [Concomitant]
     Active Substance: LEVOTHYROXINE SODIUM
     Dosage: 175MCG DAILY
  4. TRAMADOL. [Concomitant]
     Active Substance: TRAMADOL
     Dosage: 50MG
  5. GLEOLAN [Suspect]
     Active Substance: AMINOLEVULINIC ACID HYDROCHLORIDE
     Indication: PHOTODYNAMIC DIAGNOSTIC PROCEDURE
     Route: 048
     Dates: start: 20210525, end: 20210525
  6. KEPPRA [Concomitant]
     Active Substance: LEVETIRACETAM
     Dosage: 1000MG BID

REACTIONS (3)
  - Inappropriate schedule of product administration [Unknown]
  - Overdose [Unknown]
  - Drug ineffective [Unknown]

NARRATIVE: CASE EVENT DATE: 20210525
